FAERS Safety Report 7760217-5 (Version None)
Quarter: 2011Q3

REPORT INFORMATION
  Report Type: 
  Country: None (occurrence: None)
  Receive Date: 20110919
  Receipt Date: 20110909
  Transmission Date: 20111222
  Serious: Yes (Hospitalization, Other)
  Sender: FDA-Public Use
  Company Number: US-GLAXOSMITHKLINE-A0933246A

PATIENT
  Age: 66 Year
  Sex: Female

DRUGS (12)
  1. IBUPROFEN [Concomitant]
  2. BLOOD PRESSURE MEDICATION [Concomitant]
  3. EXFORGE [Concomitant]
  4. GABAPENTIN [Suspect]
     Indication: SLEEP DISORDER THERAPY
     Dosage: 1CAP AT NIGHT
     Route: 048
  5. EXFORGE [Suspect]
     Indication: PRODUCT USED FOR UNKNOWN INDICATION
     Dosage: 1TAB PER DAY
     Route: 048
  6. MECLIZINE [Concomitant]
  7. METFORMIN HCL [Concomitant]
  8. PROMACTA [Suspect]
     Indication: COAGULOPATHY
     Dosage: 50MG PER DAY
     Route: 048
     Dates: start: 20090310
  9. FUROSEMIDE [Concomitant]
  10. GABAPENTIN [Concomitant]
  11. METOPROLOL TARTRATE [Concomitant]
  12. POTASSIUM [Concomitant]

REACTIONS (9)
  - TREMOR [None]
  - LIVER DISORDER [None]
  - FALL [None]
  - PAIN IN EXTREMITY [None]
  - DIZZINESS [None]
  - SWELLING [None]
  - MALAISE [None]
  - FLUID RETENTION [None]
  - NERVOUS SYSTEM DISORDER [None]
